FAERS Safety Report 25946389 (Version 1)
Quarter: 2025Q4

REPORT INFORMATION
  Report Type: Spontaneous
  Country: CN (occurrence: CN)
  Receive Date: 20251022
  Receipt Date: 20251022
  Transmission Date: 20260118
  Serious: Yes (Hospitalization)
  Sender: BEIGENE
  Company Number: CN-BEIGENE-BGN-2025-017933

PATIENT
  Age: 73 Year
  Weight: 60 kg

DRUGS (20)
  1. TISLELIZUMAB [Suspect]
     Active Substance: TISLELIZUMAB
     Indication: Gastric cancer stage IV
     Dosage: 200 MILLIGRAM
  2. TISLELIZUMAB [Suspect]
     Active Substance: TISLELIZUMAB
     Dosage: 200 MILLIGRAM
  3. TISLELIZUMAB [Suspect]
     Active Substance: TISLELIZUMAB
     Dosage: 200 MILLIGRAM
  4. TISLELIZUMAB [Suspect]
     Active Substance: TISLELIZUMAB
     Dosage: 200 MILLIGRAM
  5. TISLELIZUMAB [Suspect]
     Active Substance: TISLELIZUMAB
     Dosage: 200 MILLIGRAM
  6. TISLELIZUMAB [Suspect]
     Active Substance: TISLELIZUMAB
     Dosage: 200 MILLIGRAM
  7. TISLELIZUMAB [Suspect]
     Active Substance: TISLELIZUMAB
     Dosage: 200 MILLIGRAM, Q3WK
  8. OXALIPLATIN [Concomitant]
     Active Substance: OXALIPLATIN
     Indication: Gastric cancer stage IV
     Dosage: 200 MILLIGRAM
  9. OXALIPLATIN [Concomitant]
     Active Substance: OXALIPLATIN
     Dosage: 200 MILLIGRAM
  10. OXALIPLATIN [Concomitant]
     Active Substance: OXALIPLATIN
     Dosage: 200 MILLIGRAM
  11. OXALIPLATIN [Concomitant]
     Active Substance: OXALIPLATIN
     Dosage: 200 MILLIGRAM
  12. OXALIPLATIN [Concomitant]
     Active Substance: OXALIPLATIN
     Dosage: 200 MILLIGRAM
  13. OXALIPLATIN [Concomitant]
     Active Substance: OXALIPLATIN
     Dosage: 200 MILLIGRAM
  14. CAPECITABINE [Concomitant]
     Active Substance: CAPECITABINE
     Indication: Gastric cancer stage IV
     Dosage: 1.5 GRAM,BID, D1-14
  15. CAPECITABINE [Concomitant]
     Active Substance: CAPECITABINE
     Dosage: 1.5 GRAM,BID, D1-14
  16. CAPECITABINE [Concomitant]
     Active Substance: CAPECITABINE
     Dosage: 1.5 GRAM,BID, D1-14
  17. CAPECITABINE [Concomitant]
     Active Substance: CAPECITABINE
     Dosage: 1.5 GRAM,BID, D1-14
  18. CAPECITABINE [Concomitant]
     Active Substance: CAPECITABINE
     Dosage: 1.5 GRAM,BID, D1-14
  19. CAPECITABINE [Concomitant]
     Active Substance: CAPECITABINE
     Dosage: 1.5 GRAM,BID, D1-14
  20. CAPECITABINE [Concomitant]
     Active Substance: CAPECITABINE
     Dosage: 1500 MILLIGRAM, BID

REACTIONS (7)
  - Shock [Unknown]
  - Myelosuppression [Recovering/Resolving]
  - Abdominal pain upper [Unknown]
  - Chest discomfort [Unknown]
  - Dyspnoea [Unknown]
  - Hyperpyrexia [Unknown]
  - Electrolyte imbalance [Unknown]
